FAERS Safety Report 10150056 (Version 3)
Quarter: 2016Q2

REPORT INFORMATION
  Report Type: Spontaneous
  Country: US (occurrence: US)
  Receive Date: 20140502
  Receipt Date: 20160610
  Transmission Date: 20160815
  Serious: Yes (Other)
  Sender: FDA-Public Use
  Company Number: US-PFIZER INC-2014119040

PATIENT
  Age: 61 Year
  Sex: Male

DRUGS (1)
  1. LYRICA [Suspect]
     Active Substance: PREGABALIN
     Indication: NEURALGIA
     Dosage: 75 MG (1 TABLET), 2X/DAY
     Route: 048

REACTIONS (5)
  - Pain [Unknown]
  - Thrombosis [Unknown]
  - Pain in extremity [Unknown]
  - Diabetes mellitus [Unknown]
  - Arthropathy [Unknown]
